FAERS Safety Report 9791487 (Version 3)
Quarter: 2014Q1

REPORT INFORMATION
  Report Type: Spontaneous
  Country: AR (occurrence: AR)
  Receive Date: 20140101
  Receipt Date: 20140224
  Transmission Date: 20141002
  Serious: No
  Sender: FDA-Public Use
  Company Number: PHHY2013AR151333

PATIENT
  Sex: Female

DRUGS (3)
  1. EXELON [Suspect]
     Dosage: 1.5 MG (AT BREAKFAST), UNK
     Route: 048
     Dates: start: 20130710
  2. EXELON [Suspect]
     Dosage: 3 MG, UNK
     Route: 048
  3. EXELON [Suspect]
     Dosage: 2 DF, DAILY (1CAPSULE IN THE MORNING AND 1.5 MG IN THE AFTERNOON)
     Route: 048

REACTIONS (3)
  - Drug intolerance [Unknown]
  - Vomiting [Unknown]
  - Nausea [Unknown]
